FAERS Safety Report 11470174 (Version 2)
Quarter: 2015Q3

REPORT INFORMATION
  Report Type: Spontaneous
  Country: US (occurrence: US)
  Receive Date: 20150903
  Receipt Date: 20150903
  Transmission Date: 20151125
  Serious: No
  Sender: FDA-Public Use
  Company Number: US-ELI_LILLY_AND_COMPANY-US201111005496

PATIENT
  Age: 41 Year
  Sex: Male

DRUGS (4)
  1. CYMBALTA [Suspect]
     Active Substance: DULOXETINE HYDROCHLORIDE
     Indication: BACK PAIN
     Dosage: 60 MG, QD
  2. KLONOPIN [Concomitant]
     Active Substance: CLONAZEPAM
  3. VYVANSE [Concomitant]
     Active Substance: LISDEXAMFETAMINE DIMESYLATE
  4. CYMBALTA [Suspect]
     Active Substance: DULOXETINE HYDROCHLORIDE
     Dosage: 120 MG, EACH MORNING

REACTIONS (15)
  - Anxiety [Unknown]
  - Lethargy [Unknown]
  - Drug withdrawal syndrome [Unknown]
  - Balance disorder [Unknown]
  - Hostility [Unknown]
  - Sexual dysfunction [Unknown]
  - Anger [Unknown]
  - Drug effect incomplete [Not Recovered/Not Resolved]
  - Fall [Unknown]
  - Dissociation [Unknown]
  - Rebound effect [Unknown]
  - Visual acuity reduced [Unknown]
  - Abnormal behaviour [Unknown]
  - Paraesthesia [Unknown]
  - Aggression [Unknown]
